FAERS Safety Report 21036461 (Version 7)
Quarter: 2023Q1

REPORT INFORMATION
  Report Type: Report from Study
  Country: US (occurrence: US)
  Receive Date: 20220702
  Receipt Date: 20230314
  Transmission Date: 20230418
  Serious: No
  Sender: FDA-Public Use
  Company Number: US-NOVARTISTESTPH-NVSC2022US150156

PATIENT
  Age: 11 Year
  Sex: Female

DRUGS (2)
  1. COSENTYX [Suspect]
     Active Substance: SECUKINUMAB
     Indication: Psoriasis
     Dosage: 75 MG, 1ST 5 DOSES WEEKLY THEN QMONTH
     Route: 058
     Dates: start: 20220603
  2. COSENTYX [Suspect]
     Active Substance: SECUKINUMAB
     Dosage: 75 MG, QW (ONCE WEEKLY FOR 5 WEEKS)(THEN ONCE EVERY 4WEEKS)
     Route: 058
     Dates: start: 20220606

REACTIONS (2)
  - Skin exfoliation [Recovering/Resolving]
  - Headache [Unknown]

NARRATIVE: CASE EVENT DATE: 20220606
